FAERS Safety Report 5819777-3 (Version None)
Quarter: 2008Q3

REPORT INFORMATION
  Report Type: 
  Country: None (occurrence: None)
  Receive Date: 20080723
  Receipt Date: 20080711
  Transmission Date: 20090109
  Serious: Yes (Other)
  Sender: FDA-Public Use
  Company Number: US-PFIZER INC-2008059409

PATIENT
  Sex: Female
  Weight: 84 kg

DRUGS (3)
  1. CHANTIX [Suspect]
     Indication: SMOKING CESSATION THERAPY
     Dates: start: 20080704, end: 20080710
  2. ANAESTHETICS [Interacting]
     Indication: COLONOSCOPY
  3. NAPROXEN [Concomitant]

REACTIONS (7)
  - COLONOSCOPY [None]
  - DEPRESSION [None]
  - DRUG INTERACTION [None]
  - MOOD ALTERED [None]
  - PARANOIA [None]
  - PERSONALITY CHANGE [None]
  - PSYCHOTIC DISORDER [None]
